FAERS Safety Report 8157515 (Version 3)
Quarter: 2013Q2

REPORT INFORMATION
  Report Type: Spontaneous
  Country: US (occurrence: US)
  Receive Date: 20110927
  Receipt Date: 20130405
  Transmission Date: 20140414
  Serious: Yes (Death, Other)
  Sender: FDA-Public Use
  Company Number: US-ASTRAZENECA-2011SE12584

PATIENT
  Age: 41 Year
  Sex: Male

DRUGS (6)
  1. SEROQUEL [Suspect]
     Route: 048
     Dates: start: 20090223
  2. MIRAPEX [Concomitant]
     Dates: start: 20090223
  3. DIVALPROEX ER [Concomitant]
     Dates: start: 20090223
  4. GEODON [Concomitant]
     Dates: start: 20090223
  5. AMLODIPINE-BENAZ [Concomitant]
     Dosage: 10/20 MG
     Dates: start: 20090223
  6. PAROXETINE [Concomitant]
     Dates: start: 20090223

REACTIONS (11)
  - Cardio-respiratory arrest [Fatal]
  - Congestive cardiomyopathy [Fatal]
  - Cardiomegaly [Fatal]
  - Ventricular hypertrophy [Fatal]
  - Pulmonary oedema [Fatal]
  - Brain oedema [Fatal]
  - Visceral congestion [Fatal]
  - Nephrosclerosis [Fatal]
  - Diabetic coma [Unknown]
  - Pancreatitis [Unknown]
  - Type 2 diabetes mellitus [Unknown]
